FAERS Safety Report 9691307 (Version 1)
Quarter: 2013Q4

REPORT INFORMATION
  Report Type: Spontaneous
  Country: US (occurrence: US)
  Receive Date: 20131115
  Receipt Date: 20131115
  Transmission Date: 20140711
  Serious: No
  Sender: FDA-Public Use
  Company Number: US-TEVA-444738USA

PATIENT
  Sex: Female
  Weight: 63.56 kg

DRUGS (3)
  1. PARAGARD 380A [Suspect]
     Indication: CONTRACEPTION
     Route: 015
     Dates: start: 201305
  2. FEXOFENADINE [Concomitant]
     Indication: SEASONAL ALLERGY
  3. MONTELUKAST [Concomitant]
     Indication: SEASONAL ALLERGY

REACTIONS (2)
  - Metrorrhagia [Not Recovered/Not Resolved]
  - Menorrhagia [Not Recovered/Not Resolved]
